FAERS Safety Report 17093262 (Version 1)
Quarter: 2019Q4

REPORT INFORMATION
  Report Type: Spontaneous
  Country: GB (occurrence: GB)
  Receive Date: 20191129
  Receipt Date: 20191129
  Transmission Date: 20200122
  Serious: Yes (Life-Threatening, Hospitalization, Disabling, Other)
  Sender: FDA-Public Use
  Company Number: GB-TEVA-2019-GB-1142218

PATIENT
  Age: 19 Year
  Sex: Female
  Weight: 47.62 kg

DRUGS (7)
  1. PROPRANOLOL [Concomitant]
     Active Substance: PROPRANOLOL HYDROCHLORIDE
  2. MUNALEA [Concomitant]
     Active Substance: DESOGESTREL\ETHINYL ESTRADIOL
  3. ZOPICLONE [Concomitant]
     Active Substance: ZOPICLONE
  4. MIRTAZAPINE. [Concomitant]
     Active Substance: MIRTAZAPINE
  5. PROMETHAZINE HYDROCHLORIDE. [Concomitant]
     Active Substance: PROMETHAZINE HYDROCHLORIDE
  6. PAROXETINE. [Suspect]
     Active Substance: PAROXETINE
     Indication: DEPRESSION
     Dosage: 10-30MG
     Route: 048
     Dates: start: 20180313, end: 20180629
  7. PREGABALIN. [Concomitant]
     Active Substance: PREGABALIN

REACTIONS (1)
  - Suicidal ideation [Not Recovered/Not Resolved]

NARRATIVE: CASE EVENT DATE: 20180410
